FAERS Safety Report 17421996 (Version 2)
Quarter: 2020Q1

REPORT INFORMATION
  Report Type: Spontaneous
  Country: JP (occurrence: JP)
  Receive Date: 20200214
  Receipt Date: 20200226
  Transmission Date: 20200409
  Serious: Yes (Other)
  Sender: FDA-Public Use
  Company Number: JP-ALLERGAN-2006977US

PATIENT
  Sex: Male

DRUGS (1)
  1. LINACLOTIDE - BP [Suspect]
     Active Substance: LINACLOTIDE
     Indication: IRRITABLE BOWEL SYNDROME
     Dosage: 0.25 MG, ONCE DAILY, BEFORE BREAKFAST
     Route: 048

REACTIONS (3)
  - Diarrhoea [Recovered/Resolved]
  - Haemorrhoids [Unknown]
  - Underdose [Unknown]
